FAERS Safety Report 18454831 (Version 1)
Quarter: 2020Q4

REPORT INFORMATION
  Report Type: Report from Study
  Country: US (occurrence: US)
  Receive Date: 20201102
  Receipt Date: 20201102
  Transmission Date: 20210114
  Serious: No
  Sender: FDA-Public Use
  Company Number: NVSC2020US293522

PATIENT
  Age: 64 Year
  Sex: Male

DRUGS (1)
  1. ENTRESTO [Suspect]
     Active Substance: SACUBITRIL\VALSARTAN
     Indication: PRODUCT USED FOR UNKNOWN INDICATION
     Dosage: 1 DF, BID (24.26 MG, TWICE A DAY)
     Route: 048
     Dates: start: 20200522, end: 20200627

REACTIONS (6)
  - Depression [Unknown]
  - Therapeutic response unexpected [Recovering/Resolving]
  - Therapeutic product effect increased [Unknown]
  - Sluggishness [Unknown]
  - Renal disorder [Unknown]
  - Anxiety [Unknown]

NARRATIVE: CASE EVENT DATE: 20200522
